FAERS Safety Report 7503561-9 (Version None)
Quarter: 2011Q2

REPORT INFORMATION
  Report Type: 
  Country: None (occurrence: None)
  Receive Date: 20110525
  Receipt Date: 20110517
  Transmission Date: 20111010
  Serious: Yes (Hospitalization)
  Sender: FDA-Public Use
  Company Number: FR-ROCHE-778355

PATIENT
  Age: 62 Year
  Sex: Female

DRUGS (9)
  1. ARIXTRA [Concomitant]
     Dosage: DOSE REPORTED AS 7.5MG/0.6ML. PRE-FILLED SYRINGES.
  2. LEVOTHYROXINE SODIUM [Concomitant]
  3. AMIODARONE HCL [Concomitant]
  4. XELODA [Suspect]
     Indication: BREAST CANCER
     Route: 048
     Dates: start: 20110301, end: 20110407
  5. PERINDOPRIL ERBUMINE [Concomitant]
  6. CHLORHYDRATE D' AMILORIDE [Concomitant]
     Dosage: DRUG REPORTED AS CHLORHYDRATE ACEBUTOLOL.
  7. ATORVASTATIN [Concomitant]
  8. FEMARA [Concomitant]
  9. ESIDRIX [Concomitant]

REACTIONS (5)
  - DIARRHOEA [None]
  - ABDOMINAL PAIN [None]
  - VOMITING [None]
  - RENAL FAILURE ACUTE [None]
  - DEHYDRATION [None]
